FAERS Safety Report 16588144 (Version 1)
Quarter: 2019Q3

REPORT INFORMATION
  Report Type: Spontaneous
  Country: DE (occurrence: DE)
  Receive Date: 20190717
  Receipt Date: 20190717
  Transmission Date: 20191004
  Serious: Yes (Hospitalization)
  Sender: FDA-Public Use
  Company Number: PHHY2019DE163849

PATIENT
  Age: 59 Year
  Sex: Male

DRUGS (1)
  1. ACLASTA [Suspect]
     Active Substance: ZOLEDRONIC ACID
     Indication: PRODUCT USED FOR UNKNOWN INDICATION
     Dosage: 5 MG, UNK
     Route: 065
     Dates: start: 20190619, end: 20190619

REACTIONS (15)
  - Neutrophil count increased [Unknown]
  - Pain [Unknown]
  - Swelling [Unknown]
  - Hepatic function abnormal [Not Recovered/Not Resolved]
  - Headache [Unknown]
  - Lipase increased [Unknown]
  - Rash [Unknown]
  - Ear pain [Unknown]
  - Ageusia [Unknown]
  - Chills [Unknown]
  - Pyrexia [Unknown]
  - Eye colour change [Unknown]
  - Platelet count increased [Unknown]
  - Inflammatory marker increased [Recovering/Resolving]
  - Granulocyte count increased [Unknown]

NARRATIVE: CASE EVENT DATE: 201906
